FAERS Safety Report 19556571 (Version 1)
Quarter: 2021Q3

REPORT INFORMATION
  Report Type: Spontaneous
  Country: TW (occurrence: TW)
  Receive Date: 20210714
  Receipt Date: 20210714
  Transmission Date: 20211014
  Serious: Yes (Life-Threatening)
  Sender: FDA-Public Use
  Company Number: NVSC2021TW157658

PATIENT
  Age: 37 Year
  Sex: Female

DRUGS (7)
  1. NUXITAM [Concomitant]
     Indication: PRODUCT USED FOR UNKNOWN INDICATION
     Dosage: UNK, BID
     Route: 065
     Dates: start: 20210618, end: 20210708
  2. BISACODYL. [Concomitant]
     Active Substance: BISACODYL
     Dosage: UNK
  3. NUXITAM [Concomitant]
     Dosage: UNK
  4. BISACODYL. [Concomitant]
     Active Substance: BISACODYL
     Indication: PRODUCT USED FOR UNKNOWN INDICATION
     Dosage: UNK
     Route: 054
     Dates: start: 20210618, end: 20210708
  5. SENOKOT [Concomitant]
     Active Substance: SENNOSIDES
     Indication: PRODUCT USED FOR UNKNOWN INDICATION
     Dosage: 1 DF, QD
     Route: 048
     Dates: start: 20210618, end: 20210708
  6. SENOKOT [Concomitant]
     Active Substance: SENNOSIDES
     Dosage: UNK
  7. TEGRETOL XR [Suspect]
     Active Substance: CARBAMAZEPINE
     Indication: PARKINSON^S DISEASE
     Dosage: 200 MG, BID
     Route: 048
     Dates: start: 20210618, end: 20210708

REACTIONS (6)
  - Stevens-Johnson syndrome [Unknown]
  - Skin exfoliation [Unknown]
  - Rash [Unknown]
  - Maculopathy [Unknown]
  - Blister [Unknown]
  - Pyrexia [Unknown]

NARRATIVE: CASE EVENT DATE: 20210705
